FAERS Safety Report 8934276 (Version 4)
Quarter: 2013Q2

REPORT INFORMATION
  Report Type: Report from Study
  Country: DE (occurrence: DE)
  Receive Date: 20121129
  Receipt Date: 20130611
  Transmission Date: 20140414
  Serious: Yes (Hospitalization, Other)
  Sender: FDA-Public Use
  Company Number: PHHY2012DE107914

PATIENT
  Sex: Male
  Weight: 100.8 kg

DRUGS (19)
  1. ICL670A [Suspect]
     Indication: IRON OVERLOAD
     Dosage: 500 MG, QID
     Dates: start: 20111013, end: 20111107
  2. ICL670A [Suspect]
     Dosage: 500 MG, UNK
     Dates: start: 20111108, end: 20111120
  3. ICL670A [Suspect]
     Dosage: 500 MG, BID
     Dates: start: 20111121, end: 20111122
  4. ICL670A [Suspect]
     Dosage: 500 MG, UNK
     Dates: start: 20111122, end: 20111205
  5. ICL670A [Suspect]
     Dosage: 500 MG, BID
     Dates: start: 20111205, end: 20121231
  6. ALLOPURINOL [Concomitant]
     Dosage: 300 U, 5-0-0 DAILY
  7. VITAMIN B [Concomitant]
     Dosage: UNK UKN, WEEKLY
  8. TARDOCILLIN [Concomitant]
     Dosage: 1200 U, 2 PER MONTH
  9. ACETYLSALICYLIC ACID [Concomitant]
     Dosage: 100 U, DAILY
  10. METOPROLOL [Concomitant]
     Dosage: 100 U, DAILY
  11. ATACAND [Concomitant]
     Dosage: 8 U, DAILY
  12. SPIRO [Concomitant]
     Dosage: 250 U, DAILY
  13. GABAPENTIN [Concomitant]
     Dosage: 600 U, 5-0-1 DAILY
  14. SIMVASTATIN [Concomitant]
     Dosage: 40 U, 0-0-0-5
  15. PANTOZOL [Concomitant]
     Dosage: 20 U, 1-0-0
     Dates: start: 20110918
  16. PANTOZOL [Concomitant]
     Dosage: 40 U, 1-0-1
     Dates: start: 20110919
  17. VERGENTAN [Concomitant]
     Dosage: UNK UKN, AS NECESSARY
     Dates: start: 20111018
  18. ONDANSETRON [Concomitant]
     Dosage: AS REQUIRED
     Dates: start: 20130430
  19. TILIDIN N [Concomitant]
     Dosage: 50 TILIDIN /4 NALOXONE UNIT,1-0-2,DAILY

REACTIONS (8)
  - Peripheral arterial occlusive disease [Not Recovered/Not Resolved]
  - Gangrene [Recovered/Resolved]
  - Condition aggravated [Recovered/Resolved]
  - Creatinine renal clearance decreased [Recovered/Resolved]
  - Infection [Recovered/Resolved]
  - Rash [Recovered/Resolved]
  - Hypersensitivity [Recovered/Resolved]
  - Blood creatinine increased [Not Recovered/Not Resolved]
